FAERS Safety Report 17191808 (Version 1)
Quarter: 2020Q1

REPORT INFORMATION
  Report Type: Spontaneous
  Country: US (occurrence: US)
  Receive Date: 20191222
  Receipt Date: 20191222
  Transmission Date: 20200409
  Serious: Yes (Other)
  Sender: FDA-Public Use
  Company Number: None

PATIENT
  Age: 31 Year
  Sex: Female
  Weight: 58.5 kg

DRUGS (1)
  1. BOTOX [Suspect]
     Active Substance: ONABOTULINUMTOXINA
     Indication: SKIN COSMETIC PROCEDURE

REACTIONS (6)
  - Vertigo [None]
  - Dizziness [None]
  - Migraine [None]
  - Anxiety [None]
  - Visual impairment [None]
  - Pain [None]

NARRATIVE: CASE EVENT DATE: 20181028
